FAERS Safety Report 6175241-6 (Version None)
Quarter: 2009Q2

REPORT INFORMATION
  Report Type: 
  Country: None (occurrence: None)
  Receive Date: 20090430
  Receipt Date: 20090130
  Transmission Date: 20091009
  Serious: No
  Sender: FDA-Public Use
  Company Number: US-ASTRAZENECA-2009UW02831

PATIENT
  Sex: Female
  Weight: 85.3 kg

DRUGS (7)
  1. NEXIUM [Suspect]
     Indication: GASTROOESOPHAGEAL REFLUX DISEASE
     Route: 048
  2. NEXIUM [Suspect]
     Dosage: UNKNOWN
     Route: 048
  3. METFORMIN HCL [Concomitant]
  4. GLIPIZIDE [Concomitant]
  5. LEVOXYL [Concomitant]
  6. OXYBUTYNIN CHLORIDE [Concomitant]
  7. PROZAC [Concomitant]

REACTIONS (5)
  - ABDOMINAL PAIN UPPER [None]
  - DECREASED APPETITE [None]
  - DIZZINESS [None]
  - MALAISE [None]
  - REBOUND EFFECT [None]
